FAERS Safety Report 7578828-9 (Version None)
Quarter: 2011Q2

REPORT INFORMATION
  Report Type: 
  Country: None (occurrence: None)
  Receive Date: 20110628
  Receipt Date: 20110616
  Transmission Date: 20111010
  Serious: Yes (Hospitalization)
  Sender: FDA-Public Use
  Company Number: IT-UCBSA-031444

PATIENT
  Sex: Male

DRUGS (2)
  1. KEPPRA [Suspect]
     Indication: CONVULSION
     Dates: start: 20110325, end: 20110401
  2. NO CONCOMITANT MEDICATION [Concomitant]

REACTIONS (2)
  - UNEVALUABLE EVENT [None]
  - PLATELET COUNT DECREASED [None]
